FAERS Safety Report 11739651 (Version 2)
Quarter: 2015Q4

REPORT INFORMATION
  Report Type: Spontaneous
  Country: US (occurrence: US)
  Receive Date: 20151110
  Receipt Date: 20151120
  Transmission Date: 20160304
  Serious: No
  Sender: FDA-Public Use
  Company Number: US-ELI_LILLY_AND_COMPANY-US201207007299

PATIENT
  Age: 65 Year
  Sex: Female

DRUGS (2)
  1. FORTEO [Suspect]
     Active Substance: TERIPARATIDE
     Indication: OSTEOPOROSIS
     Dosage: 20 UG, QD
     Dates: start: 20120720
  2. FORTEO [Suspect]
     Active Substance: TERIPARATIDE
     Dosage: 20 UG, QD
     Route: 065
     Dates: end: 20120817

REACTIONS (20)
  - Limb discomfort [Unknown]
  - Toothache [Recovered/Resolved]
  - Fear [Unknown]
  - Asthenia [Unknown]
  - Injection site erythema [Not Recovered/Not Resolved]
  - Arthralgia [Recovered/Resolved]
  - Pain [Not Recovered/Not Resolved]
  - Fatigue [Unknown]
  - Decreased appetite [Unknown]
  - Insomnia [Unknown]
  - Arthropathy [Unknown]
  - Sleep disorder due to general medical condition, insomnia type [Unknown]
  - Arthralgia [Unknown]
  - Nausea [Unknown]
  - Musculoskeletal pain [Unknown]
  - Rhinorrhoea [Unknown]
  - Headache [Unknown]
  - Adverse reaction [Unknown]
  - Mood disorder due to a general medical condition [Unknown]
  - Neck pain [Unknown]

NARRATIVE: CASE EVENT DATE: 2012
